FAERS Safety Report 9330387 (Version 1)
Quarter: 2013Q2

REPORT INFORMATION
  Report Type: Spontaneous
  Country: US (occurrence: US)
  Receive Date: 20130605
  Receipt Date: 20130605
  Transmission Date: 20140414
  Serious: No
  Sender: FDA-Public Use
  Company Number: US-BIOGENIDEC-2013BI050026

PATIENT
  Sex: Male

DRUGS (1)
  1. TYSABRI [Suspect]
     Indication: MULTIPLE SCLEROSIS
     Route: 042
     Dates: start: 20130328, end: 20130524

REACTIONS (9)
  - Blindness [Unknown]
  - Muscular weakness [Unknown]
  - Muscle spasms [Unknown]
  - Hypoaesthesia [Unknown]
  - Balance disorder [Unknown]
  - Pain [Unknown]
  - Vision blurred [Unknown]
  - Temperature intolerance [Unknown]
  - Fatigue [Unknown]
